FAERS Safety Report 7681832-3 (Version None)
Quarter: 2011Q3

REPORT INFORMATION
  Report Type: 
  Country: None (occurrence: None)
  Receive Date: 20110813
  Receipt Date: 20110810
  Transmission Date: 20111222
  Serious: Yes (Other)
  Sender: FDA-Public Use
  Company Number: US-AMGEN-QUU394246

PATIENT
  Age: 58 Year
  Sex: Female
  Weight: 89.9 kg

DRUGS (9)
  1. MULTIVITAMINS AND IRON [Concomitant]
  2. LOVAZA [Concomitant]
  3. TRAMADOL HCL [Concomitant]
     Dosage: 50 MG, UNK
     Dates: start: 20090923
  4. NPLATE [Suspect]
     Indication: IDIOPATHIC THROMBOCYTOPENIC PURPURA
     Dosage: 90 A?G, QWK
     Route: 058
     Dates: start: 20090826, end: 20100127
  5. LORAZEPAM [Concomitant]
     Dosage: UNK UNK, UNK
     Dates: start: 20091002
  6. NOVOLIN 70/30 [Concomitant]
  7. LISINOPRIL [Concomitant]
  8. OXYCODONE HYDROCHLORIDE [Concomitant]
     Dosage: 5 MG, UNK
     Dates: start: 20091007
  9. ATENOLOL [Concomitant]

REACTIONS (11)
  - ANAEMIA [None]
  - THERAPEUTIC RESPONSE DECREASED [None]
  - ARTHRALGIA [None]
  - OSTEONECROSIS [None]
  - RENAL CYST [None]
  - NAUSEA [None]
  - MYALGIA [None]
  - MOBILITY DECREASED [None]
  - UTERINE LEIOMYOMA [None]
  - METASTASES TO BONE [None]
  - ABDOMINAL PAIN [None]
